FAERS Safety Report 7274802-0 (Version None)
Quarter: 2011Q1

REPORT INFORMATION
  Report Type: 
  Country: None (occurrence: None)
  Receive Date: 20110128
  Receipt Date: 20110114
  Transmission Date: 20110831
  Serious: Yes (Death)
  Sender: FDA-Public Use
  Company Number: 1000018288

PATIENT
  Age: 84 Year
  Sex: Male

DRUGS (4)
  1. QUETIAPINE (QUETIAPINE) (QUETIAPINE) [Concomitant]
  2. MEMANTINE [Suspect]
     Indication: DEMENTIA ALZHEIMER'S TYPE
     Dosage: 20 MG (20 MG, 1 IN 1 D), ORAL
     Route: 048
     Dates: start: 20091216, end: 20100503
  3. LORAZEPAM [Concomitant]
  4. RIVASTIGMINE (RIVASTIGMINE) (RIVASTIGMINE) [Concomitant]

REACTIONS (2)
  - CARDIAC ARREST [None]
  - URINARY TRACT INFECTION [None]
